FAERS Safety Report 24991867 (Version 1)
Quarter: 2025Q1

REPORT INFORMATION
  Report Type: Spontaneous
  Country: US (occurrence: None)
  Receive Date: 20250220
  Receipt Date: 20250220
  Transmission Date: 20250408
  Serious: No
  Sender: FDA-CTU
  Company Number: None

PATIENT
  Age: 94 Year
  Sex: Male
  Weight: 92 kg

DRUGS (1)
  1. SEMAGLUTIDE [Suspect]
     Active Substance: SEMAGLUTIDE
     Route: 048
     Dates: start: 20231026, end: 20250205

REACTIONS (2)
  - Abdominal pain [None]
  - Small intestinal obstruction [None]

NARRATIVE: CASE EVENT DATE: 20250205
